FAERS Safety Report 17417199 (Version 1)
Quarter: 2020Q1

REPORT INFORMATION
  Report Type: Spontaneous
  Country: FI (occurrence: FI)
  Receive Date: 20200214
  Receipt Date: 20200214
  Transmission Date: 20200409
  Serious: Yes (Death, Life-Threatening, Hospitalization, Other)
  Sender: FDA-Public Use
  Company Number: FI-SUN PHARMACEUTICAL INDUSTRIES LTD-2020RR-236627

PATIENT
  Age: 71 Year
  Sex: Female
  Weight: 74 kg

DRUGS (6)
  1. CYTARABINE. [Suspect]
     Active Substance: CYTARABINE
     Indication: B-CELL LYMPHOMA
     Dosage: UNK ()
     Route: 065
     Dates: start: 201710
  2. FLUDARABINE [Suspect]
     Active Substance: FLUDARABINE PHOSPHATE
     Indication: NON-HODGKIN^S LYMPHOMA
     Dosage: UNK ()
     Route: 042
     Dates: start: 20181210
  3. GEMCITABINE. [Suspect]
     Active Substance: GEMCITABINE
     Indication: B-CELL LYMPHOMA
     Dosage: UNK ()
     Route: 065
     Dates: start: 20181127
  4. OXALIPLATIN. [Suspect]
     Active Substance: OXALIPLATIN
     Indication: B-CELL LYMPHOMA
     Dosage: UNK ()
     Route: 065
     Dates: start: 20181127
  5. CYCLOPHOSPHAMIDE. [Suspect]
     Active Substance: CYCLOPHOSPHAMIDE
     Indication: NON-HODGKIN^S LYMPHOMA
     Dosage: UNK ()
     Route: 042
     Dates: start: 20181210
  6. ETOPOSIDE. [Suspect]
     Active Substance: ETOPOSIDE
     Indication: B-CELL LYMPHOMA
     Dosage: UNK ()
     Route: 065
     Dates: start: 201710

REACTIONS (21)
  - Lung infiltration [Unknown]
  - Tooth infection [Recovered/Resolved]
  - Diffuse large B-cell lymphoma refractory [Fatal]
  - Cellulitis [Unknown]
  - Hydronephrosis [Unknown]
  - Anaemia [Unknown]
  - Sepsis [Fatal]
  - Thrombocytopenia [Unknown]
  - Bone marrow failure [Fatal]
  - Metastases to spleen [Fatal]
  - Metastases to lymph nodes [Fatal]
  - Non-Hodgkin^s lymphoma [Fatal]
  - Colitis [Unknown]
  - Metastases to liver [Fatal]
  - Retinal haemorrhage [Unknown]
  - Metastases to bone marrow [Fatal]
  - Diffuse large B-cell lymphoma [Fatal]
  - Febrile neutropenia [Unknown]
  - Metastases to diaphragm [Fatal]
  - Therapeutic product effect decreased [Unknown]
  - Pancytopenia [Unknown]

NARRATIVE: CASE EVENT DATE: 201808
